FAERS Safety Report 5074687-7 (Version None)
Quarter: 2006Q3

REPORT INFORMATION
  Report Type: 
  Country: None (occurrence: None)
  Receive Date: 20060803
  Receipt Date: 20060717
  Transmission Date: 20061208
  Serious: Yes (Other)
  Sender: FDA-Public Use
  Company Number: US200604003909

PATIENT
  Age: 55 Year
  Sex: Female

DRUGS (5)
  1. CYMBALTA [Suspect]
     Indication: PAIN
     Dosage: 60 + 30 MG (1/D) - SEE IMAGE
     Dates: start: 20051115, end: 20051121
  2. CYMBALTA [Suspect]
     Indication: PAIN
     Dosage: 60 + 30 MG (1/D) - SEE IMAGE
     Dates: start: 20051122, end: 20060419
  3. LEXAPRO     /USA/ (ESCITALOPRAM) [Concomitant]
  4. TOPAMAX    /AUS/(TOPIRAMATE) [Concomitant]
  5. ATIVAN [Concomitant]

REACTIONS (2)
  - BIPOLAR DISORDER [None]
  - HYPOMANIA [None]
